FAERS Safety Report 8545491 (Version 2)
Quarter: 2013Q2

REPORT INFORMATION
  Report Type: Spontaneous
  Country: US (occurrence: None)
  Receive Date: 20120315
  Receipt Date: 20121031
  Transmission Date: 20140414
  Serious: Yes (Other)
  Sender: FDA-Public Use
  Company Number: PHHY2011US33298

PATIENT
  Age: 46 Year
  Sex: Female
  Weight: 49.9 kg

DRUGS (3)
  1. GILENYA [Suspect]
     Indication: MULTIPLE SCLEROSIS
     Dosage: 0.5 MG, DAILY, ORAL
     Route: 048
     Dates: start: 20110126, end: 20120604
  2. OXYBUTYNIN (OXYBUTYNIN) [Concomitant]
  3. AMPYRA [Concomitant]

REACTIONS (4)
  - GROIN PAIN [None]
  - ARTHRALGIA [None]
  - POLYMENORRHOEA [None]
  - White blood cell count decreased [None]
